FAERS Safety Report 16452389 (Version 1)
Quarter: 2019Q2

REPORT INFORMATION
  Report Type: Spontaneous
  Country: GB (occurrence: GB)
  Receive Date: 20190619
  Receipt Date: 20190619
  Transmission Date: 20190711
  Serious: Yes (Hospitalization)
  Sender: FDA-Public Use
  Company Number: GB-PERRIGO-19GB007372

PATIENT
  Age: 2 Year
  Sex: Male

DRUGS (1)
  1. PARACETAMOL [Suspect]
     Active Substance: ACETAMINOPHEN
     Indication: ACCIDENTAL EXPOSURE TO PRODUCT BY CHILD
     Dosage: UNK, SINGLE
     Route: 048
     Dates: start: 20190524, end: 20190524

REACTIONS (7)
  - Liver injury [Unknown]
  - Product administration error [Unknown]
  - Vomiting [Unknown]
  - Somnolence [Recovered/Resolved]
  - Accidental exposure to product packaging by child [Unknown]
  - Unresponsive to stimuli [Recovered/Resolved]
  - Product closure issue [Unknown]

NARRATIVE: CASE EVENT DATE: 20190524
